FAERS Safety Report 17264990 (Version 1)
Quarter: 2020Q1

REPORT INFORMATION
  Report Type: Spontaneous
  Country: US (occurrence: US)
  Receive Date: 20200113
  Receipt Date: 20200113
  Transmission Date: 20200409
  Serious: Yes (Other)
  Sender: FDA-Public Use
  Company Number: US-TEVA-2020-US-1167303

PATIENT
  Sex: Female

DRUGS (29)
  1. COENZYME Q10 [Concomitant]
     Active Substance: UBIDECARENONE
     Dosage: 100MG-5 CAPSULE
  2. LIDO-K 3 % [Concomitant]
  3. VALIUM [Concomitant]
     Active Substance: DIAZEPAM
  4. DULOXETINE HCL [Concomitant]
     Active Substance: DULOXETINE HYDROCHLORIDE
  5. TRADJENTA [Concomitant]
     Active Substance: LINAGLIPTIN
  6. TOPROL XL [Concomitant]
     Active Substance: METOPROLOL SUCCINATE
     Dosage: TOPROL XL 100 MG TAB ER 24H,
  7. ZOFRAN [Concomitant]
     Active Substance: ONDANSETRON HYDROCHLORIDE
  8. LISINOPRIL. [Suspect]
     Active Substance: LISINOPRIL
     Route: 065
  9. IBUPROFEN. [Concomitant]
     Active Substance: IBUPROFEN
  10. VITAMIN D3 [Concomitant]
     Active Substance: CHOLECALCIFEROL
     Dosage: 10000 UNIT CAPSULE
  11. NEURONTIN [Concomitant]
     Active Substance: GABAPENTIN
  12. MAGNESIUM [Concomitant]
     Active Substance: MAGNESIUM
  13. VISTARIL [Concomitant]
     Active Substance: HYDROXYZINE PAMOATE
  14. CLOTRIMAZOLE. [Concomitant]
     Active Substance: CLOTRIMAZOLE
     Dosage: 3 2 % CREAM/APPL,
  15. FLONASE ALLERGY RELIEF [Concomitant]
     Active Substance: FLUTICASONE PROPIONATE
  16. COMPAZINE [Concomitant]
     Active Substance: PROCHLORPERAZINE MALEATE
  17. LENVIMA [Suspect]
     Active Substance: LENVATINIB
     Indication: ENDOMETRIAL CANCER
     Dosage: 14 MILLIGRAM DAILY; 10 MG/4 MG; 14 MG DAILY
     Route: 048
     Dates: start: 20190219
  18. MULTIVITAMINS [Concomitant]
     Active Substance: VITAMINS
  19. FISH OIL [Concomitant]
     Active Substance: FISH OIL
     Dosage: 100-150 MG CAPSULE
  20. ASPIRIN. [Concomitant]
     Active Substance: ASPIRIN
  21. CRESTOR [Concomitant]
     Active Substance: ROSUVASTATIN CALCIUM
  22. KLONOPIN [Concomitant]
     Active Substance: CLONAZEPAM
  23. TYLENOL [Concomitant]
     Active Substance: ACETAMINOPHEN
  24. SYNTHROID [Concomitant]
     Active Substance: LEVOTHYROXINE SODIUM
  25. DRAMAMINE [Concomitant]
     Active Substance: DIMENHYDRINATE
  26. DEXAMETHASONE. [Concomitant]
     Active Substance: DEXAMETHASONE
  27. IMODIUM A-D [Concomitant]
     Active Substance: LOPERAMIDE HYDROCHLORIDE
  28. ATIVAN [Concomitant]
     Active Substance: LORAZEPAM
  29. GLIMEPIRIDE. [Concomitant]
     Active Substance: GLIMEPIRIDE

REACTIONS (1)
  - Renal disorder [Unknown]
